FAERS Safety Report 5889814-9 (Version None)
Quarter: 2008Q3

REPORT INFORMATION
  Report Type: 
  Country: None (occurrence: None)
  Receive Date: 20080919
  Receipt Date: 20080912
  Transmission Date: 20090109
  Serious: Yes (Other)
  Sender: FDA-Public Use
  Company Number: PHHO2008GB10518

PATIENT
  Sex: Female
  Weight: 72 kg

DRUGS (3)
  1. ZOLEDRONIC ACID [Suspect]
     Indication: METASTASES TO BONE
     Dosage: 4 MG, UNK
     Route: 042
     Dates: start: 20031213, end: 20061110
  2. CALCIUM GLUCONATE [Concomitant]
  3. VITAMIN D [Concomitant]

REACTIONS (6)
  - GINGIVAL SWELLING [None]
  - OSTEONECROSIS [None]
  - PRIMARY SEQUESTRUM [None]
  - SWELLING FACE [None]
  - TENDERNESS [None]
  - TRISMUS [None]
